FAERS Safety Report 23542644 (Version 1)
Quarter: 2024Q1

REPORT INFORMATION
  Report Type: Spontaneous
  Country: CN (occurrence: CN)
  Receive Date: 20240220
  Receipt Date: 20240220
  Transmission Date: 20240409
  Serious: No
  Sender: FDA-Public Use
  Company Number: CN-ALKEM LABORATORIES LIMITED-CN-ALKEM-2023-10837

PATIENT
  Age: 14 Year
  Sex: Male

DRUGS (1)
  1. TRIAMCINOLONE ACETONIDE [Suspect]
     Active Substance: TRIAMCINOLONE ACETONIDE
     Indication: Acarodermatitis
     Dosage: UNK, INJECTION
     Route: 026

REACTIONS (2)
  - Acarodermatitis [Recovered/Resolved]
  - Disease recurrence [Recovered/Resolved]
